FAERS Safety Report 5827864-9 (Version None)
Quarter: 2008Q3

REPORT INFORMATION
  Report Type: 
  Country: None (occurrence: None)
  Receive Date: 20080730
  Receipt Date: 20080718
  Transmission Date: 20090109
  Serious: Yes (Hospitalization, Other)
  Sender: FDA-Public Use
  Company Number: DE-PFIZER INC-2007090435

PATIENT
  Sex: Male
  Weight: 85 kg

DRUGS (4)
  1. CHANTIX [Suspect]
     Indication: SMOKING CESSATION THERAPY
     Route: 048
     Dates: start: 20070709, end: 20070711
  2. SOLIFENACIN SUCCINATE [Concomitant]
  3. FLUOXETINE [Concomitant]
  4. LEVITRA [Concomitant]

REACTIONS (5)
  - CARDIAC DISORDER [None]
  - CORONARY ARTERY DISEASE [None]
  - MIGRAINE [None]
  - NAUSEA [None]
  - VOMITING [None]
